FAERS Safety Report 5337407-4 (Version None)
Quarter: 2007Q2

REPORT INFORMATION
  Report Type: 
  Country: None (occurrence: None)
  Receive Date: 20070309
  Receipt Date: 20060606
  Transmission Date: 20071010
  Serious: Yes (Other)
  Sender: FDA-Public Use
  Company Number: US200604001071

PATIENT
  Age: 42 Year
  Sex: Female

DRUGS (2)
  1. GEMZAR [Suspect]
     Indication: ADENOCARCINOMA PANCREAS
     Dosage: 350 MG/M2, INTRAVENOUS
     Route: 042
     Dates: start: 20060130, end: 20060204
  2. THERAPEUTIC RADIOPHARMACEUTICALS [Concomitant]

REACTIONS (5)
  - CONJUNCTIVAL HAEMORRHAGE [None]
  - DIARRHOEA [None]
  - MUCOSAL INFLAMMATION [None]
  - PLATELET COUNT DECREASED [None]
  - WHITE BLOOD CELL COUNT DECREASED [None]
